FAERS Safety Report 15819503 (Version 1)
Quarter: 2019Q1

REPORT INFORMATION
  Report Type: Spontaneous
  Country: US (occurrence: US)
  Receive Date: 20190114
  Receipt Date: 20190114
  Transmission Date: 20190417
  Serious: No
  Sender: FDA-Public Use
  Company Number: US-ELI_LILLY_AND_COMPANY-US201901004047

PATIENT
  Age: 37 Year
  Sex: Male

DRUGS (2)
  1. HUMALOG [Suspect]
     Active Substance: INSULIN LISPRO
     Indication: DIABETES MELLITUS
     Dosage: 4 U, OTHER (PER MEAL)
     Route: 058
     Dates: start: 201811
  2. HUMALOG [Suspect]
     Active Substance: INSULIN LISPRO
     Dosage: 4 U, OTHER (PER MEAL)
     Route: 058

REACTIONS (2)
  - Intentional product misuse [Unknown]
  - Wrong patient received product [Recovering/Resolving]

NARRATIVE: CASE EVENT DATE: 201811
